FAERS Safety Report 17909483 (Version 1)
Quarter: 2020Q2

REPORT INFORMATION
  Report Type: Spontaneous
  Country: JP (occurrence: JP)
  Receive Date: 20200617
  Receipt Date: 20200617
  Transmission Date: 20200714
  Serious: No
  Sender: FDA-Public Use
  Company Number: NVSC2020JP168931

PATIENT

DRUGS (1)
  1. LAMISIL AT [Suspect]
     Active Substance: TERBINAFINE HYDROCHLORIDE
     Indication: PRODUCT USED FOR UNKNOWN INDICATION
     Dosage: CREAM
     Route: 061
     Dates: start: 202006, end: 20200607

REACTIONS (4)
  - Pruritus [Unknown]
  - Application site rash [Unknown]
  - Application site erythema [Unknown]
  - Product use issue [Unknown]

NARRATIVE: CASE EVENT DATE: 202006
